FAERS Safety Report 11873397 (Version 3)
Quarter: 2018Q3

REPORT INFORMATION
  Report Type: Spontaneous
  Country: US (occurrence: US)
  Receive Date: 20151228
  Receipt Date: 20180713
  Transmission Date: 20181010
  Serious: Yes (Hospitalization, Other)
  Sender: FDA-Public Use
  Company Number: US-DSJP-DSU-2015-139906

PATIENT

DRUGS (10)
  1. BENICAR [Suspect]
     Active Substance: OLMESARTAN MEDOXOMIL
     Indication: HYPERTENSION
     Dosage: UNK
     Dates: start: 2007
  2. BENICAR HCT [Suspect]
     Active Substance: HYDROCHLOROTHIAZIDE\OLMESARTAN MEDOXOMIL
     Indication: HYPERTENSION
     Dosage: UNK
     Dates: start: 2007
  3. ASPIRIN                            /00002701/ [Concomitant]
     Active Substance: ASPIRIN
     Indication: PRODUCT USED FOR UNKNOWN INDICATION
     Dosage: 81 MG, ONCE EVERY 1HR
  4. AUGMENTIN [Concomitant]
     Active Substance: AMOXICILLIN\CLAVULANATE POTASSIUM
     Indication: NASOPHARYNGITIS
     Dosage: UNK
  5. BENICAR [Suspect]
     Active Substance: OLMESARTAN MEDOXOMIL
     Dosage: 40 MG, QD
     Dates: start: 20080110, end: 201509
  6. BENICAR [Suspect]
     Active Substance: OLMESARTAN MEDOXOMIL
     Dosage: 20 MG, QD
     Dates: start: 200801, end: 201509
  7. BENICAR [Suspect]
     Active Substance: OLMESARTAN MEDOXOMIL
     Dosage: 10 MG, UNK
     Dates: start: 200801, end: 201509
  8. MULTIVITAMIN                       /00097801/ [Concomitant]
     Active Substance: VITAMINS
     Indication: PRODUCT USED FOR UNKNOWN INDICATION
     Dosage: UNK
  9. PROMETHAZINE [Concomitant]
     Active Substance: PROMETHAZINE\PROMETHAZINE HYDROCHLORIDE
     Indication: NASOPHARYNGITIS
     Dosage: UNK
  10. AZITHROMYCIN ANHYDROUS. [Concomitant]
     Active Substance: AZITHROMYCIN ANHYDROUS
     Indication: NASOPHARYNGITIS
     Dosage: UNK

REACTIONS (14)
  - Fear [Unknown]
  - Anxiety [Recovered/Resolved]
  - Hypotension [Unknown]
  - Colitis ulcerative [Unknown]
  - Skin cancer [Recovered/Resolved]
  - Decreased appetite [Unknown]
  - Sprue-like enteropathy [Unknown]
  - Autoimmune disorder [Recovered/Resolved]
  - Cataract [Unknown]
  - Clostridium difficile infection [Unknown]
  - Insomnia [Unknown]
  - Nephropathy [Unknown]
  - Deep vein thrombosis [Recovered/Resolved]
  - Depression [Recovered/Resolved]

NARRATIVE: CASE EVENT DATE: 201010
